FAERS Safety Report 10023822 (Version 1)
Quarter: 2014Q1

REPORT INFORMATION
  Report Type: Report from Study
  Country: US (occurrence: US)
  Receive Date: 20140320
  Receipt Date: 20140320
  Transmission Date: 20141002
  Serious: No
  Sender: FDA-Public Use
  Company Number: US-ALEXION-A201400735

PATIENT
  Age: 35 Year
  Sex: Female

DRUGS (4)
  1. SOLIRIS [Suspect]
     Indication: PAROXYSMAL NOCTURNAL HAEMOGLOBINURIA
     Dosage: 1200 MG, Q2W
     Route: 042
     Dates: start: 20090227
  2. FOLIC ACID [Concomitant]
     Dosage: UNK
     Dates: start: 20100608
  3. IRON [Concomitant]
     Dosage: UNK
     Dates: start: 20100608
  4. PREDNISONE [Concomitant]
     Dosage: UNK
     Dates: start: 20100608

REACTIONS (1)
  - Musculoskeletal stiffness [Not Recovered/Not Resolved]
